FAERS Safety Report 4849776-X (Version None)
Quarter: 2005Q4

REPORT INFORMATION
  Report Type: 
  Country: None (occurrence: None)
  Receive Date: 20051107
  Receipt Date: 20041005
  Transmission Date: 20060501
  Serious: Yes (Other)
  Sender: FDA-Public Use
  Company Number: PHEH2004US10704

PATIENT
  Age: 73 Year
  Sex: Female

DRUGS (1)
  1. ESTRADERM [Suspect]
     Indication: HOT FLUSH
     Dosage: TWICE WEEKLY, TRANSDERMAL
     Route: 062
     Dates: start: 19840101, end: 20040401

REACTIONS (4)
  - BREAST CANCER [None]
  - BREAST DISORDER [None]
  - METASTASES TO BONE [None]
  - PAIN [None]
